FAERS Safety Report 9303497 (Version 2)
Quarter: 2013Q2

REPORT INFORMATION
  Report Type: Spontaneous
  Country: US (occurrence: US)
  Receive Date: 20130522
  Receipt Date: 20130617
  Transmission Date: 20140414
  Serious: No
  Sender: FDA-Public Use
  Company Number: US-PFIZER INC-2013151842

PATIENT
  Age: 78 Year
  Sex: Male
  Weight: 72.56 kg

DRUGS (1)
  1. VIAGRA [Suspect]
     Dosage: UNK

REACTIONS (2)
  - Lip swelling [Recovering/Resolving]
  - Lip pain [Recovering/Resolving]
